FAERS Safety Report 16009559 (Version 1)
Quarter: 2019Q1

REPORT INFORMATION
  Report Type: Spontaneous
  Country: FR (occurrence: FR)
  Receive Date: 20190226
  Receipt Date: 20190226
  Transmission Date: 20190418
  Serious: Yes (Other)
  Sender: FDA-Public Use
  Company Number: FR-PROVELL PHARMACEUTICALS-2063251

PATIENT
  Age: 25 Year
  Sex: Female

DRUGS (1)
  1. EUTHYROX [Suspect]
     Active Substance: LEVOTHYROXINE SODIUM
     Indication: BASEDOW^S DISEASE
     Dates: start: 2001

REACTIONS (2)
  - Maternal exposure during pregnancy [Recovered/Resolved]
  - Complication of pregnancy [Recovered/Resolved]

NARRATIVE: CASE EVENT DATE: 2004
